FAERS Safety Report 8070938-5 (Version None)
Quarter: 2012Q1

REPORT INFORMATION
  Report Type: 
  Country: None (occurrence: None)
  Receive Date: 20120125
  Receipt Date: 20120120
  Transmission Date: 20120608
  Serious: Yes (Other)
  Sender: FDA-Public Use
  Company Number: US-MERCK-1201USA03061

PATIENT
  Age: 59 Year
  Sex: Male

DRUGS (1)
  1. FOSAMAX [Suspect]
     Route: 048
     Dates: start: 20060101, end: 20100101

REACTIONS (2)
  - FEMUR FRACTURE [None]
  - FALL [None]
